FAERS Safety Report 6542838-0 (Version None)
Quarter: 2010Q1

REPORT INFORMATION
  Report Type: 
  Country: None (occurrence: None)
  Receive Date: 20100119
  Receipt Date: 20100114
  Transmission Date: 20100710
  Serious: No
  Sender: FDA-Public Use
  Company Number: US-ALLERGAN-0916855US

PATIENT
  Age: 65 Year
  Sex: Male
  Weight: 86.2 kg

DRUGS (9)
  1. LUMIGAN [Suspect]
     Indication: GLAUCOMA
     Dosage: UNK
     Route: 047
     Dates: start: 20090601, end: 20091001
  2. ASPIRIN [Concomitant]
     Dosage: UNK
  3. HYDROCHLOROTHIAZIDE [Concomitant]
     Dosage: UNK
  4. LISINOPRIL [Concomitant]
     Dosage: UNK
  5. SIMVASTATIN [Concomitant]
     Dosage: UNK
  6. CIALIS [Concomitant]
     Dosage: UNK
  7. TIMOLOL MALEATE [Concomitant]
     Indication: GLAUCOMA
  8. VITAMINS [Concomitant]
     Dosage: UNK
  9. WARFARIN [Concomitant]
     Dosage: UNK

REACTIONS (1)
  - NO ADVERSE EVENT [None]
